FAERS Safety Report 25400523 (Version 1)
Quarter: 2025Q2

REPORT INFORMATION
  Report Type: Spontaneous
  Country: US (occurrence: US)
  Receive Date: 20250605
  Receipt Date: 20250605
  Transmission Date: 20250716
  Serious: No
  Sender: ABBVIE
  Company Number: US-ABBVIE-6309101

PATIENT
  Age: 58 Year
  Sex: Female

DRUGS (1)
  1. LATISSE [Suspect]
     Active Substance: BIMATOPROST
     Indication: Madarosis
     Dosage: FORM STRENGTH: 0.03 MILLIGRAM
     Route: 061
     Dates: start: 2020

REACTIONS (1)
  - Madarosis [Recovering/Resolving]

NARRATIVE: CASE EVENT DATE: 20250501
